FAERS Safety Report 4479816-1 (Version None)
Quarter: 2004Q3

REPORT INFORMATION
  Report Type: 
  Country: None (occurrence: None)
  Receive Date: 20040923
  Receipt Date: 20040524
  Transmission Date: 20050211
  Serious: No
  Sender: FDA-Public Use
  Company Number: USA040568328

PATIENT
  Age: 81 Year
  Sex: Female
  Weight: 35 kg

DRUGS (3)
  1. FORTEO [Suspect]
     Indication: OSTEOPOROSIS
     Dosage: 20 UG/1 DAY
     Dates: start: 20030501, end: 20040201
  2. CALCIUM [Concomitant]
  3. PREDNISONE [Concomitant]

REACTIONS (1)
  - MUSCLE SPASMS [None]
